FAERS Safety Report 18633985 (Version 4)
Quarter: 2021Q1

REPORT INFORMATION
  Report Type: Report from Study
  Country: DE (occurrence: DE)
  Receive Date: 20201218
  Receipt Date: 20210212
  Transmission Date: 20210419
  Serious: Yes (Hospitalization, Other)
  Sender: FDA-Public Use
  Company Number: DE-PFIZER INC-2020500255

PATIENT
  Age: 64 Year
  Sex: Female

DRUGS (10)
  1. ENCORAFENIB [Suspect]
     Active Substance: ENCORAFENIB
     Indication: MALIGNANT MELANOMA
     Dosage: 450 MG, QD (1/DAY)
     Route: 048
     Dates: start: 20200826, end: 20200902
  2. ENCORAFENIB [Suspect]
     Active Substance: ENCORAFENIB
     Dosage: 450 MG, QD (1/DAY)
     Route: 048
     Dates: start: 20200908, end: 20210115
  3. BINIMETINIB [Suspect]
     Active Substance: BINIMETINIB
     Indication: MALIGNANT MELANOMA
     Dosage: 45 MG, BID (2/DAY)
     Route: 048
     Dates: start: 20200826, end: 20200902
  4. BINIMETINIB [Suspect]
     Active Substance: BINIMETINIB
     Dosage: 45 MG, BID (2/DAY)
     Route: 048
     Dates: start: 20200908, end: 20210115
  5. ASPIRIN. [Concomitant]
     Active Substance: ASPIRIN
     Indication: PROPHYLAXIS
     Dosage: UNK UNK, UNKNOWN
     Route: 065
  6. RANITIC [Concomitant]
     Active Substance: RANITIDINE HYDROCHLORIDE
     Indication: PROPHYLAXIS
     Dosage: UNK UNK, UNKNOWN
     Route: 065
  7. DECORTIN H [Concomitant]
     Active Substance: PREDNISOLONE
     Dosage: UNK UNK, UNKNOWN
     Route: 065
  8. CANDESARTAN. [Concomitant]
     Active Substance: CANDESARTAN
     Dosage: UNK UNK, UNKNOWN
     Route: 065
  9. VIGANTOL [COLECALCIFEROL?CHOLESTERIN] [Concomitant]
     Indication: PROPHYLAXIS
     Dosage: UNK UNK, UNKNOWN
     Route: 065
  10. ENCORAFENIB [Suspect]
     Active Substance: ENCORAFENIB
     Dosage: 300 MG, QD (1/DAY)
     Route: 048
     Dates: start: 20200903, end: 20200907

REACTIONS (6)
  - Subretinal fluid [Recovered/Resolved]
  - Hyperthyroidism [Not Recovered/Not Resolved]
  - Palpitations [Recovered/Resolved]
  - Rash [Recovered/Resolved]
  - Autoimmune disorder [Not Recovered/Not Resolved]
  - Blood creatinine increased [Recovered/Resolved]

NARRATIVE: CASE EVENT DATE: 20200903
